FAERS Safety Report 9867290 (Version 2)
Quarter: 2017Q1

REPORT INFORMATION
  Report Type: Spontaneous
  Country: CA (occurrence: CA)
  Receive Date: 20140204
  Receipt Date: 20170324
  Transmission Date: 20170429
  Serious: Yes (Death, Hospitalization, Other)
  Sender: FDA-Public Use
  Company Number: CA-ABBVIE-14P-028-1196272-00

PATIENT
  Age: 32 Year
  Sex: Female
  Weight: 89.89 kg

DRUGS (14)
  1. CIPRALEX [Concomitant]
     Active Substance: ESCITALOPRAM OXALATE
     Indication: PRODUCT USED FOR UNKNOWN INDICATION
  2. DOBUTAMINE INJECTION [Concomitant]
     Indication: PRODUCT USED FOR UNKNOWN INDICATION
     Route: 042
  3. FRAGMIN [Concomitant]
     Active Substance: DALTEPARIN SODIUM
     Indication: PRODUCT USED FOR UNKNOWN INDICATION
     Route: 042
  4. HYDROCORTISONE, NOT SPECIFIED [Concomitant]
     Indication: PRODUCT USED FOR UNKNOWN INDICATION
  5. FLUCONAZOLE, NOT SPECIFIED [Concomitant]
     Indication: PRODUCT USED FOR UNKNOWN INDICATION
  6. HUMIRA [Suspect]
     Active Substance: ADALIMUMAB
     Indication: CARDIOMYOPATHY
     Route: 058
     Dates: start: 20121220
  7. HYDROMORPHONE, NOT SPECIFIED [Concomitant]
     Indication: PRODUCT USED FOR UNKNOWN INDICATION
  8. MEROPENEM, POWDER FOR SOLUTION INTRAVENOUS [Concomitant]
     Indication: PRODUCT USED FOR UNKNOWN INDICATION
     Route: 042
  9. HEPARIN CALCIUM, NOT SPECIFIED [Concomitant]
     Indication: PRODUCT USED FOR UNKNOWN INDICATION
  10. NOREPINEPHRINE, NOT SPECIFIED [Concomitant]
     Indication: PRODUCT USED FOR UNKNOWN INDICATION
  11. ESOMEPRAZOLE [Concomitant]
     Active Substance: ESOMEPRAZOLE
     Indication: PRODUCT USED FOR UNKNOWN INDICATION
     Route: 050
  12. MIDAZOLAM INJECTION, SOLUTION INTRAMUSCULAR [Concomitant]
     Indication: PRODUCT USED FOR UNKNOWN INDICATION
     Route: 030
  13. VASOPRESSIN INJECTION [Concomitant]
     Active Substance: VASOPRESSIN
     Indication: PRODUCT USED FOR UNKNOWN INDICATION
  14. VANCOMYCIN, NOT SPECIFIED [Concomitant]
     Indication: PRODUCT USED FOR UNKNOWN INDICATION

REACTIONS (11)
  - Septic shock [Fatal]
  - Depressed level of consciousness [Fatal]
  - Pulseless electrical activity [Fatal]
  - Nausea [Fatal]
  - Diarrhoea [Fatal]
  - Pyrexia [Fatal]
  - Acute kidney injury [Fatal]
  - Left ventricular dysfunction [Fatal]
  - Thrombosis [Fatal]
  - Vomiting [Fatal]
  - Ventricular hypokinesia [Fatal]
